FAERS Safety Report 6335202-0 (Version None)
Quarter: 2009Q3

REPORT INFORMATION
  Report Type: 
  Country: None (occurrence: None)
  Receive Date: 20090831
  Receipt Date: 20090819
  Transmission Date: 20100115
  Serious: Yes (Death, Hospitalization)
  Sender: FDA-Public Use
  Company Number: JP-PFIZER INC-2009261092

PATIENT
  Age: 75 Year

DRUGS (4)
  1. CAMPTOSAR [Suspect]
     Indication: LARGE INTESTINE CARCINOMA
     Dosage: 260 MG, UNK
     Route: 041
     Dates: start: 20090708, end: 20090722
  2. CALCIUM LEVOFOLINATE [Suspect]
     Indication: LARGE INTESTINE CARCINOMA
     Dosage: 350 MG, UNK
     Route: 041
     Dates: start: 20090708, end: 20090722
  3. FLUOROURACIL [Suspect]
     Indication: LARGE INTESTINE CARCINOMA
     Dosage: 700 MG , UNK
     Route: 040
     Dates: start: 20090708, end: 20090722
  4. FLUOROURACIL [Suspect]
     Dosage: 4000 MG D1-2
     Route: 041
     Dates: start: 20090708, end: 20090722

REACTIONS (3)
  - NEUTROPENIA [None]
  - PNEUMONIA [None]
  - THROMBOCYTOPENIA [None]
